FAERS Safety Report 14375194 (Version 1)
Quarter: 2018Q1

REPORT INFORMATION
  Report Type: Spontaneous
  Country: US (occurrence: US)
  Receive Date: 20180111
  Receipt Date: 20180111
  Transmission Date: 20180509
  Serious: Yes (Other)
  Sender: FDA-Public Use
  Company Number: US-GLENMARK PHARMACEUTICALS-2017GMK030468

PATIENT
  Age: 66 Year
  Sex: Male

DRUGS (3)
  1. LIDOCAINE. [Suspect]
     Active Substance: LIDOCAINE
     Indication: PRODUCT USED FOR UNKNOWN INDICATION
     Dosage: 2 DF, 3CC^S OF 1.5% LIDOCAINE IN TOTAL
     Route: 008
  2. EPINEPHRINE. [Concomitant]
     Active Substance: EPINEPHRINE
     Indication: PRODUCT USED FOR UNKNOWN INDICATION
     Dosage: 2 DF, 1:200K OF EPINEPHRINE; IN TOTAL
     Route: 008
  3. EPINEPHRINE. [Concomitant]
     Active Substance: EPINEPHRINE
     Dosage: 1 MG, UNK
     Route: 065

REACTIONS (6)
  - Anaesthetic complication [Recovered/Resolved]
  - Dyspnoea [Recovered/Resolved]
  - Oxygen saturation decreased [Recovered/Resolved]
  - Muscular weakness [Recovered/Resolved]
  - Aphonia [Recovered/Resolved]
  - Unresponsive to stimuli [Recovered/Resolved]
